FAERS Safety Report 13991099 (Version 1)
Quarter: 2017Q3

REPORT INFORMATION
  Report Type: Spontaneous
  Country: GB (occurrence: GB)
  Receive Date: 20170920
  Receipt Date: 20170920
  Transmission Date: 20171128
  Serious: Yes (Hospitalization, Other)
  Sender: FDA-Public Use
  Company Number: GB-SUN PHARMACEUTICAL INDUSTRIES LTD-2017RR-149804

PATIENT
  Age: 74 Year
  Sex: Female

DRUGS (2)
  1. SERTRALINE [Suspect]
     Active Substance: SERTRALINE HYDROCHLORIDE
     Indication: DEPRESSION
     Dosage: 50 MG
     Route: 048
     Dates: start: 20170719
  2. DIAZEPAM. [Concomitant]
     Active Substance: DIAZEPAM
     Indication: PRODUCT USED FOR UNKNOWN INDICATION
     Dosage: STOPPED SHORTLY BEFORE.
     Route: 065

REACTIONS (2)
  - Withdrawal syndrome [Unknown]
  - Delirium [Recovered/Resolved]

NARRATIVE: CASE EVENT DATE: 20170815
